FAERS Safety Report 7645243-9 (Version None)
Quarter: 2011Q3

REPORT INFORMATION
  Report Type: 
  Country: None (occurrence: None)
  Receive Date: 20110729
  Receipt Date: 20110727
  Transmission Date: 20111222
  Serious: Yes (Hospitalization, Disabling, Other)
  Sender: FDA-Public Use
  Company Number: US-MERCK-1012USA01315

PATIENT
  Age: 60 Year
  Sex: Female
  Weight: 59 kg

DRUGS (2)
  1. FOSAMAX PLUS D [Suspect]
     Indication: OSTEOPOROSIS
     Route: 048
     Dates: start: 19940101, end: 20090701
  2. FOSAMAX [Suspect]
     Indication: OSTEOPOROSIS
     Route: 048
     Dates: start: 19940101, end: 20090129

REACTIONS (63)
  - FEMUR FRACTURE [None]
  - ADVERSE DRUG REACTION [None]
  - ANAEMIA [None]
  - HYPERTENSION [None]
  - MUSCLE SPASMS [None]
  - VOCAL CORD PARESIS [None]
  - SCOLIOSIS [None]
  - RHINITIS ALLERGIC [None]
  - PULMONARY HYPERTENSION [None]
  - CONFUSIONAL STATE [None]
  - HYPOACUSIS [None]
  - HALLUCINATION, AUDITORY [None]
  - BRONCHOSPASM [None]
  - CHRONIC OBSTRUCTIVE PULMONARY DISEASE [None]
  - NECK MASS [None]
  - VOCAL CORD ATROPHY [None]
  - OSTEOSCLEROSIS [None]
  - DRUG INEFFECTIVE [None]
  - CHRONIC SINUSITIS [None]
  - FIBROSIS [None]
  - ASPIRATION [None]
  - BACK PAIN [None]
  - PALPITATIONS [None]
  - HYPONATRAEMIA [None]
  - SPINAL OSTEOARTHRITIS [None]
  - SOMNOLENCE [None]
  - RIB FRACTURE [None]
  - DEPRESSION [None]
  - CATARACT [None]
  - GROIN PAIN [None]
  - ANXIETY [None]
  - MUSCULOSKELETAL DISORDER [None]
  - MULTIPLE FRACTURES [None]
  - BONE LOSS [None]
  - UTERINE LEIOMYOMA [None]
  - DIVERTICULUM INTESTINAL [None]
  - OSTEOPOROSIS [None]
  - CHEST PAIN [None]
  - LOW TURNOVER OSTEOPATHY [None]
  - ORAL DISORDER [None]
  - SLEEP APNOEA SYNDROME [None]
  - WEIGHT DECREASED [None]
  - RESTLESS LEGS SYNDROME [None]
  - HYPERCHOLESTEROLAEMIA [None]
  - ARTHRALGIA [None]
  - LUNG NEOPLASM [None]
  - LARYNGEAL DISORDER [None]
  - REGURGITATION [None]
  - PANIC ATTACK [None]
  - HYPERREFLEXIA [None]
  - BRONCHITIS [None]
  - CERVICAL DYSPLASIA [None]
  - HYPERCALCAEMIA [None]
  - INCREASED TENDENCY TO BRUISE [None]
  - VITAMIN D DEFICIENCY [None]
  - DYSPHONIA [None]
  - FALL [None]
  - ERUCTATION [None]
  - STRESS URINARY INCONTINENCE [None]
  - PRODUCTIVE COUGH [None]
  - DYSPNOEA [None]
  - OSTEOPENIA [None]
  - EMPHYSEMA [None]
